FAERS Safety Report 6387158-2 (Version None)
Quarter: 2009Q4

REPORT INFORMATION
  Report Type: 
  Country: None (occurrence: None)
  Receive Date: 20091002
  Receipt Date: 20090929
  Transmission Date: 20100525
  Serious: Yes (Death, Hospitalization)
  Sender: FDA-Public Use
  Company Number: PHHO2009US09438

PATIENT
  Sex: Male

DRUGS (4)
  1. RAD 666 RAD+TAB [Suspect]
     Indication: GLIOBLASTOMA MULTIFORME
     Dosage: UNK
     Route: 048
     Dates: start: 20090317, end: 20090721
  2. AVASTIN COMP-AVA+ [Suspect]
     Indication: GLIOBLASTOMA MULTIFORME
     Dosage: UNK
     Route: 048
     Dates: start: 20090317, end: 20090721
  3. RADIATION [Concomitant]
  4. CHEMOTHERAPEUTICS NOS [Concomitant]

REACTIONS (12)
  - APHASIA [None]
  - ASTHENIA [None]
  - BRAIN INJURY [None]
  - DEEP VEIN THROMBOSIS [None]
  - DYSPNOEA [None]
  - DYSPNOEA EXERTIONAL [None]
  - ENCEPHALOPATHY [None]
  - HYPOXIA [None]
  - MENTAL STATUS CHANGES [None]
  - PULMONARY EMBOLISM [None]
  - RESPIRATORY DISORDER [None]
  - VENA CAVA FILTER INSERTION [None]
